FAERS Safety Report 18861721 (Version 2)
Quarter: 2021Q1

REPORT INFORMATION
  Report Type: Spontaneous
  Country: US (occurrence: US)
  Receive Date: 20210208
  Receipt Date: 20210326
  Transmission Date: 20210420
  Serious: Yes (Other)
  Sender: FDA-Public Use
  Company Number: NVSC2021US022626

PATIENT
  Age: 10 Month
  Sex: Female

DRUGS (1)
  1. ZOLGENSMA [Suspect]
     Active Substance: ONASEMNOGENE ABEPARVOVEC-XIOI
     Indication: SPINAL MUSCULAR ATROPHY
     Dosage: 1 DF, ONCE/SINGLE (1 UNIT)
     Route: 042
     Dates: start: 202008

REACTIONS (3)
  - Apnoea [Recovered/Resolved]
  - Respiratory distress [Unknown]
  - Aspiration [Unknown]
